FAERS Safety Report 10152676 (Version 2)
Quarter: 2014Q3

REPORT INFORMATION
  Report Type: Spontaneous
  Country: US (occurrence: US)
  Receive Date: 20140505
  Receipt Date: 20140821
  Transmission Date: 20150326
  Serious: Yes (Hospitalization, Other)
  Sender: FDA-Public Use
  Company Number: US-BAYER-2014-064637

PATIENT
  Age: 26 Year
  Sex: Female
  Weight: 70.3 kg

DRUGS (1)
  1. MIRENA [Suspect]
     Active Substance: LEVONORGESTREL
     Indication: CONTRACEPTION
     Dosage: 20 MCG/24HR, CONT
     Route: 015
     Dates: start: 20110411, end: 20120430

REACTIONS (10)
  - Device issue [Recovered/Resolved]
  - Uterine perforation [Recovered/Resolved]
  - Emotional distress [None]
  - Depression [None]
  - Anxiety [None]
  - Off label use [None]
  - Genital haemorrhage [None]
  - Injury [Recovered/Resolved]
  - Pain [Recovered/Resolved]
  - Mental disorder [None]

NARRATIVE: CASE EVENT DATE: 201107
